FAERS Safety Report 12874412 (Version 4)
Quarter: 2016Q4

REPORT INFORMATION
  Report Type: Report from Study
  Country: US (occurrence: US)
  Receive Date: 20161021
  Receipt Date: 20161214
  Transmission Date: 20170207
  Serious: Yes (Death, Hospitalization)
  Sender: FDA-Public Use
  Company Number: US-ACTELION-A-NJ2016-142273

PATIENT
  Age: 64 Year
  Sex: Female
  Weight: 76.64 kg

DRUGS (4)
  1. UPTRAVI [Suspect]
     Active Substance: SELEXIPAG
     Dosage: 200 MCG, QD
     Route: 048
     Dates: end: 20161021
  2. SILDENAFIL. [Concomitant]
     Active Substance: SILDENAFIL
  3. UPTRAVI [Suspect]
     Active Substance: SELEXIPAG
     Indication: PULMONARY ARTERIAL HYPERTENSION
     Dosage: 200 MCG, BID
     Route: 048
     Dates: start: 20160919
  4. UPTRAVI [Suspect]
     Active Substance: SELEXIPAG
     Dosage: 400 MCG, BID
     Route: 048

REACTIONS (10)
  - Diarrhoea [Recovering/Resolving]
  - General physical health deterioration [Unknown]
  - Oedema [Unknown]
  - Cerebral haemorrhage [Unknown]
  - Mental status changes [Not Recovered/Not Resolved]
  - Unevaluable event [Unknown]
  - Medical induction of coma [Unknown]
  - Death [Fatal]
  - Swelling [Unknown]
  - Gait disturbance [Unknown]

NARRATIVE: CASE EVENT DATE: 20161021
